FAERS Safety Report 10218696 (Version 1)
Quarter: 2014Q2

REPORT INFORMATION
  Report Type: Spontaneous
  Country: DE (occurrence: DE)
  Receive Date: 20140605
  Receipt Date: 20140605
  Transmission Date: 20141212
  Serious: Yes (Hospitalization)
  Sender: FDA-Public Use
  Company Number: GXKR2014DE002103

PATIENT
  Sex: 0

DRUGS (5)
  1. CARBAMAZEPINE [Suspect]
     Dosage: 600 MG, UNK
     Route: 048
     Dates: start: 20130828, end: 20130902
  2. DIAZEPAM [Concomitant]
     Dosage: 20 MG, UNK
     Route: 048
     Dates: start: 20130828, end: 20130905
  3. PANTOZOL [Concomitant]
     Dosage: 40 MG, UNK
     Route: 048
     Dates: start: 20130828, end: 20130910
  4. BELOC//METOPROLOL SUCCINATE [Concomitant]
     Route: 048
  5. CLONIDIN [Concomitant]
     Dosage: 150 UG, UNK
     Route: 048

REACTIONS (2)
  - Dermatitis allergic [Recovered/Resolved]
  - Rash [Recovered/Resolved]
